FAERS Safety Report 21018101 (Version 3)
Quarter: 2022Q4

REPORT INFORMATION
  Report Type: Spontaneous
  Country: US (occurrence: US)
  Receive Date: 20220628
  Receipt Date: 20221012
  Transmission Date: 20230113
  Serious: Yes (Other)
  Sender: FDA-Public Use
  Company Number: US-BRISTOL-MYERS SQUIBB COMPANY-2022-058132

PATIENT
  Age: 67 Year
  Sex: Male

DRUGS (3)
  1. POMALYST [Suspect]
     Active Substance: POMALIDOMIDE
     Indication: Product used for unknown indication
     Route: 048
     Dates: start: 202101
  2. POMALYST [Suspect]
     Active Substance: POMALIDOMIDE
     Dosage: OTHER
     Route: 048
     Dates: start: 202101
  3. POMALYST [Suspect]
     Active Substance: POMALIDOMIDE
     Dosage: FREQUENCY OTHER
     Route: 048
     Dates: start: 202206

REACTIONS (4)
  - Burning sensation [Unknown]
  - Neuropathy peripheral [Not Recovered/Not Resolved]
  - Skin disorder [Unknown]
  - Dyspepsia [Unknown]

NARRATIVE: CASE EVENT DATE: 20220401
